FAERS Safety Report 17567622 (Version 1)
Quarter: 2020Q1

REPORT INFORMATION
  Report Type: Spontaneous
  Country: CA (occurrence: CA)
  Receive Date: 20200320
  Receipt Date: 20200320
  Transmission Date: 20200409
  Serious: Yes (Death, Hospitalization, Other)
  Sender: FDA-Public Use
  Company Number: NVSC2020CA079783

PATIENT
  Age: 77 Year
  Sex: Female

DRUGS (3)
  1. SPIRONOLACTONE. [Concomitant]
     Active Substance: SPIRONOLACTONE
     Indication: PRODUCT USED FOR UNKNOWN INDICATION
     Dosage: UNK
     Route: 065
  2. SANDOSTATIN LAR DEPOT [Suspect]
     Active Substance: OCTREOTIDE ACETATE
     Indication: NEUROENDOCRINE TUMOUR
     Dosage: 30 MG, UNKNOWN
     Route: 030
  3. AMIODARONE HYDROCHLORIDE. [Suspect]
     Active Substance: AMIODARONE HYDROCHLORIDE
     Indication: PRODUCT USED FOR UNKNOWN INDICATION
     Dosage: UNK
     Route: 065

REACTIONS (14)
  - Blood pressure increased [Fatal]
  - Asthenia [Fatal]
  - Drug interaction [Fatal]
  - Syncope [Fatal]
  - Pneumonia [Fatal]
  - Device related infection [Fatal]
  - Mobility decreased [Fatal]
  - Terminal state [Fatal]
  - Urinary tract infection [Fatal]
  - Loss of consciousness [Fatal]
  - Weight increased [Fatal]
  - Bradycardia [Fatal]
  - Fatigue [Fatal]
  - Cholelithiasis [Fatal]
